FAERS Safety Report 7788356-3 (Version None)
Quarter: 2011Q3

REPORT INFORMATION
  Report Type: 
  Country: None (occurrence: None)
  Receive Date: 20110929
  Receipt Date: 20110929
  Transmission Date: 20111222
  Serious: No
  Sender: FDA-Public Use
  Company Number: None

PATIENT
  Age: 42 Year
  Sex: Male

DRUGS (1)
  1. GLEEVEC [Suspect]
     Indication: LIVER INJURY
     Dates: start: 20090527, end: 20100304

REACTIONS (6)
  - ALANINE AMINOTRANSFERASE INCREASED [None]
  - ABDOMINAL DISCOMFORT [None]
  - BLOOD BILIRUBIN INCREASED [None]
  - HEPATIC FIBROSIS [None]
  - ASPARTATE AMINOTRANSFERASE INCREASED [None]
  - CHROMATURIA [None]
